FAERS Safety Report 4332385-9 (Version None)
Quarter: 2004Q2

REPORT INFORMATION
  Report Type: 
  Country: None (occurrence: None)
  Receive Date: 20040401
  Receipt Date: 20040323
  Transmission Date: 20050107
  Serious: Yes (Hospitalization)
  Sender: FDA-Public Use
  Company Number: 2004019639

PATIENT
  Age: 66 Year
  Sex: Female

DRUGS (2)
  1. LIPITOR (ATORVASTATIN) [Suspect]
     Indication: HYPERCHOLESTEROLAEMIA
     Dosage: 5 MG (DAILY), ORAL
     Route: 048
     Dates: start: 20001001, end: 20040226
  2. CANDESARTAN CILEXETIL (CANDESARTAN CILEXETIL) [Concomitant]

REACTIONS (7)
  - BLOOD CHOLESTEROL INCREASED [None]
  - EYE PAIN [None]
  - INCISIONAL HERNIA [None]
  - LACRIMATION INCREASED [None]
  - LOW DENSITY LIPOPROTEIN INCREASED [None]
  - SEASONAL ALLERGY [None]
  - TREATMENT NONCOMPLIANCE [None]
